FAERS Safety Report 6712118-9 (Version None)
Quarter: 2010Q2

REPORT INFORMATION
  Report Type: 
  Country: None (occurrence: None)
  Receive Date: 20100505
  Receipt Date: 20100423
  Transmission Date: 20101027
  Serious: Yes (Death)
  Sender: FDA-Public Use
  Company Number: US-PFIZER INC-2009214342

PATIENT
  Sex: Male
  Weight: 78 kg

DRUGS (12)
  1. REVATIO [Suspect]
     Indication: PULMONARY HYPERTENSION
     Dosage: 20 MG, 3X/DAY
  2. ALDACTONE [Concomitant]
     Dosage: 25 MG, 1X/DAY
  3. COREG [Concomitant]
     Dosage: 25 MG, 2X/DAY
     Dates: start: 20090115
  4. COREG [Concomitant]
     Dosage: 12.5 MG, 2X/DAY
     Dates: end: 20090115
  5. LASIX [Concomitant]
     Dosage: 40 MG, 1X/DAY
  6. LANOXIN [Concomitant]
     Dosage: 125 UG, 1X/DAY
  7. COUMADIN [Concomitant]
     Dosage: 2 MG, 1X/DAY
     Dates: start: 20051101
  8. ASPIRIN [Concomitant]
     Dosage: 81 MG, 1X/DAY
     Dates: start: 20051101
  9. SIMVASTATIN [Concomitant]
     Dosage: 40 MG, 1X/DAY
  10. GLUCOPHAGE XR [Concomitant]
     Dosage: 500 MG, 1X/DAY
  11. COMBIVENT [Concomitant]
     Dosage: 2 UNK, 4X/DAY
     Dates: start: 20051101
  12. MAG-OX [Concomitant]
     Dosage: 400 MG, 1X/DAY

REACTIONS (1)
  - MYOCARDIAL INFARCTION [None]
